FAERS Safety Report 6111252-4 (Version None)
Quarter: 2009Q1

REPORT INFORMATION
  Report Type: 
  Country: None (occurrence: None)
  Receive Date: 20090311
  Receipt Date: 20090302
  Transmission Date: 20090719
  Serious: Yes (Other)
  Sender: FDA-Public Use
  Company Number: US-AVENTIS-200911648US

PATIENT
  Sex: Female

DRUGS (2)
  1. LANTUS [Suspect]
     Route: 058
     Dates: start: 20070101
  2. OPTICLIK (INSULIN INJECTION PEN) [Suspect]
     Dates: start: 20070101

REACTIONS (5)
  - CEREBROVASCULAR ACCIDENT [None]
  - DYSGRAPHIA [None]
  - GAIT DISTURBANCE [None]
  - HEMIPARESIS [None]
  - SPEECH DISORDER [None]
